FAERS Safety Report 8120964-2 (Version None)
Quarter: 2011Q4

REPORT INFORMATION
  Report Type: 
  Country: None (occurrence: None)
  Receive Date: 20111227
  Receipt Date: 20110919
  Transmission Date: 20120403
  Serious: No
  Sender: FDA-Public Use
  Company Number: PHHY2011US37939

PATIENT
  Age: 52 Year
  Sex: Female
  Weight: 56.5 kg

DRUGS (7)
  1. GILENYA [Suspect]
     Indication: MULTIPLE SCLEROSIS
     Dosage: 0.5 MG, QD, ORAL
     Route: 048
     Dates: start: 20110301
  2. FLEXERIL [Concomitant]
  3. MUPIROCIN [Concomitant]
  4. VITAMIN D [Concomitant]
  5. THEO-DUR [Concomitant]
  6. MAXAIR [Concomitant]
  7. NASONEX [Concomitant]

REACTIONS (11)
  - FATIGUE [None]
  - LYMPHOCYTE COUNT DECREASED [None]
  - EXFOLIATIVE RASH [None]
  - SWELLING [None]
  - OEDEMA PERIPHERAL [None]
  - INFLUENZA LIKE ILLNESS [None]
  - EYE SWELLING [None]
  - ECZEMA [None]
  - WEIGHT INCREASED [None]
  - ALOPECIA [None]
  - PHOTOSENSITIVITY REACTION [None]
